FAERS Safety Report 7113692-3 (Version None)
Quarter: 2010Q4

REPORT INFORMATION
  Report Type: 
  Country: None (occurrence: None)
  Receive Date: 20101119
  Receipt Date: 20101105
  Transmission Date: 20110411
  Serious: Yes (Other)
  Sender: FDA-Public Use
  Company Number: GXKR2010GB11569

PATIENT
  Age: 53 Year
  Sex: Female

DRUGS (3)
  1. METHOTREXATE [Suspect]
     Indication: RHEUMATOID ARTHRITIS
     Dosage: 20 MG, QW
     Route: 048
     Dates: start: 20090706, end: 20100924
  2. FOLIC ACID [Concomitant]
     Route: 065
  3. NAPROXEN [Concomitant]
     Route: 065

REACTIONS (3)
  - GINGIVAL PAIN [None]
  - TOOTH LOSS [None]
  - TOOTHACHE [None]
